FAERS Safety Report 20781253 (Version 1)
Quarter: 2022Q2

REPORT INFORMATION
  Report Type: Report from Study
  Country: US (occurrence: US)
  Receive Date: 20220504
  Receipt Date: 20220504
  Transmission Date: 20220720
  Serious: Yes (Other)
  Sender: FDA-Public Use
  Company Number: US-ALLERGAN-2213856US

PATIENT
  Sex: Female

DRUGS (2)
  1. UBROGEPANT [Suspect]
     Active Substance: UBROGEPANT
     Indication: Product used for unknown indication
     Dosage: 100 MG
  2. VRAYLAR [Suspect]
     Active Substance: CARIPRAZINE
     Indication: Product used for unknown indication

REACTIONS (9)
  - Foot operation [Unknown]
  - Eye operation [Unknown]
  - Knee arthroplasty [Unknown]
  - Hysterectomy [Unknown]
  - Vertigo [Unknown]
  - Glaucoma [Unknown]
  - Amnesia [Unknown]
  - Bipolar disorder [Unknown]
  - Migraine [Unknown]
